FAERS Safety Report 14929567 (Version 1)
Quarter: 2018Q2

REPORT INFORMATION
  Report Type: Spontaneous
  Country: ES (occurrence: ES)
  Receive Date: 20180523
  Receipt Date: 20180523
  Transmission Date: 20180711
  Serious: Yes (Other)
  Sender: FDA-Public Use
  Company Number: ES-009507513-1805ESP009441

PATIENT
  Age: 3 Year
  Sex: Female
  Weight: 12 kg

DRUGS (1)
  1. SINGULAIR [Suspect]
     Active Substance: MONTELUKAST SODIUM
     Indication: ASTHMA
     Dosage: 4 MG, QD
     Route: 048
     Dates: start: 20180330, end: 20180409

REACTIONS (1)
  - Enuresis [Recovered/Resolved]

NARRATIVE: CASE EVENT DATE: 20180401
